FAERS Safety Report 5565463-7 (Version None)
Quarter: 2007Q4

REPORT INFORMATION
  Report Type: 
  Country: None (occurrence: None)
  Receive Date: 20071218
  Receipt Date: 20071207
  Transmission Date: 20080405
  Serious: Yes (Other)
  Sender: FDA-Public Use
  Company Number: US-PFIZER INC-2007091137

PATIENT
  Sex: Male
  Weight: 63.5 kg

DRUGS (8)
  1. VIAGRA [Suspect]
     Indication: ERECTILE DYSFUNCTION
  2. LITHIUM CARBONATE [Concomitant]
  3. WELLBUTRIN [Concomitant]
  4. LEXAPRO [Concomitant]
  5. PROPRANOLOL [Concomitant]
  6. KLONOPIN [Concomitant]
  7. GEODON [Concomitant]
  8. TRAZODONE HCL [Concomitant]

REACTIONS (3)
  - FEELING ABNORMAL [None]
  - FLUSHING [None]
  - HALLUCINATION [None]
